FAERS Safety Report 9655431 (Version 2)
Quarter: 2013Q4

REPORT INFORMATION
  Report Type: Spontaneous
  Country: US (occurrence: US)
  Receive Date: 20131029
  Receipt Date: 20131029
  Transmission Date: 20140711
  Serious: No
  Sender: FDA-Public Use
  Company Number: US-PURDUE-USA-2012-0085798

PATIENT
  Age: 75 Year
  Sex: Male
  Weight: 92.97 kg

DRUGS (34)
  1. OXYCONTIN (NDA 22-272) [Suspect]
     Indication: PAIN
     Dosage: 60 MG, AM
     Route: 048
  2. OXYCONTIN (NDA 22-272) [Suspect]
     Dosage: 60 MG, HS
  3. OXYCONTIN (NDA 22-272) [Suspect]
     Dosage: 40 MG, 1 PM AND 5 PM
     Route: 048
  4. PANTOPRAZOLE [Concomitant]
     Indication: PRODUCT USED FOR UNKNOWN INDICATION
  5. AMIODARONE HCL [Concomitant]
     Indication: PRODUCT USED FOR UNKNOWN INDICATION
     Dosage: 200 MG, DAILY
     Route: 048
  6. ARTIFICIAL TEARS                   /00445101/ [Concomitant]
     Indication: PRODUCT USED FOR UNKNOWN INDICATION
     Dosage: 1 DROP, QID IN AFFECTED EYE
  7. CARVEDILOL [Concomitant]
     Indication: PRODUCT USED FOR UNKNOWN INDICATION
     Dosage: 6.25 MG, BID
     Route: 048
  8. CLOPIDOGREL BISULFATE [Concomitant]
     Indication: PRODUCT USED FOR UNKNOWN INDICATION
     Dosage: 75 MG, DAILY
     Route: 048
  9. COLCHICINE [Concomitant]
     Indication: GOUT
     Dosage: 0.6 MG, TID PRN
     Route: 048
  10. CYCLOSPORINE [Concomitant]
     Indication: PRODUCT USED FOR UNKNOWN INDICATION
     Dosage: 0.4 ML, BID ONE DROP IN AFFECTED EYE
     Route: 047
  11. DIPHENHYDRAMINE HCL [Concomitant]
     Indication: PRODUCT USED FOR UNKNOWN INDICATION
     Dosage: 50 MG, 1 HOUR BEFORE CONTRAST
     Route: 048
  12. DOCUSATE SODIUM [Concomitant]
     Indication: CONSTIPATION
     Dosage: 100 MG, BID
     Route: 048
  13. EPLERENONE [Concomitant]
     Indication: PRODUCT USED FOR UNKNOWN INDICATION
     Dosage: 25 MG, DAILY
     Route: 048
  14. FAMOTIDINE [Concomitant]
     Indication: PRODUCT USED FOR UNKNOWN INDICATION
     Dosage: 20 MG, DAILY
     Route: 048
  15. FUROSEMIDE [Concomitant]
     Indication: PRODUCT USED FOR UNKNOWN INDICATION
     Dosage: 20 MG, DAILY MONDAY, WEDNESDAY AND FRIDAY
     Route: 048
  16. GABAPENTIN [Concomitant]
     Indication: NEUROPATHY PERIPHERAL
     Dosage: 300 MG, HS
     Route: 048
  17. GUAIFENESIN [Concomitant]
     Indication: PRODUCT USED FOR UNKNOWN INDICATION
     Dosage: 200 MG, Q8H AM,AFTERNOON AND BEDTIME
     Route: 048
  18. HYALURONATE SODIUM [Concomitant]
     Indication: PRODUCT USED FOR UNKNOWN INDICATION
     Dosage: 25 MG, 2CC ONE DAY A WEEK TO LEFT KNEE
     Route: 014
  19. APRESOLINE [Concomitant]
     Indication: PRODUCT USED FOR UNKNOWN INDICATION
     Dosage: 25 MG, ONE TIME AS NEEDED
     Route: 048
  20. IPRATROPIUM BROMIDE [Concomitant]
     Indication: PRODUCT USED FOR UNKNOWN INDICATION
     Dosage: UNK
  21. ISOSORBIDE MONONITRATE [Concomitant]
     Indication: CARDIAC DISORDER
     Dosage: 30 MG, DAILY
     Route: 048
  22. SYNTHROID [Concomitant]
     Indication: PRODUCT USED FOR UNKNOWN INDICATION
     Dosage: 0.5 MG, DAILY BEFORE BREAKFAST
     Route: 048
  23. METOPROLOL TARTRATE [Concomitant]
     Indication: PRODUCT USED FOR UNKNOWN INDICATION
     Dosage: 50 MG, BID
     Route: 048
  24. MOMETASONE FUROATE [Concomitant]
     Indication: PRODUCT USED FOR UNKNOWN INDICATION
     Dosage: 220 MCG, INHALE 2 PUFFS BY MOUTH TWICE A DAY FOR 10 DAYS,THEN INHALE 1 PUFF EVERY DAY
     Route: 055
  25. NITROGLYCERINE [Concomitant]
     Indication: PRODUCT USED FOR UNKNOWN INDICATION
     Dosage: 0.4 MG, 1 SPRAY UNDER TONGUE AS NEEDED
  26. POLYETHYLENE GLYCOL [Concomitant]
     Indication: PRODUCT USED FOR UNKNOWN INDICATION
     Dosage: 17 GM 1 CAPFUL EVERY DAY
     Route: 048
  27. POTASSIUM CLAVULANATE [Concomitant]
     Indication: PRODUCT USED FOR UNKNOWN INDICATION
     Dosage: 20 MEQ, UNK
     Route: 048
  28. PREDNISONE                         /00044702/ [Concomitant]
     Indication: PRODUCT USED FOR UNKNOWN INDICATION
     Dosage: 50 MG, EVERY 6 HOURS-TAKE 13 HRS, 7 HRS AND 1 HR BEFORE CONTRAST
     Route: 048
  29. RANITIDINE HCL [Concomitant]
     Indication: PRODUCT USED FOR UNKNOWN INDICATION
     Dosage: 150 MG, HS
     Route: 048
  30. ROSUVASTATIN CALCIUM [Concomitant]
     Indication: BLOOD CHOLESTEROL
     Dosage: 40 MG, HS
     Route: 048
  31. SIMETHICONE [Concomitant]
     Indication: FLATULENCE
     Dosage: 160 MG, PRN
     Route: 048
  32. VALSARTAN [Concomitant]
     Indication: PRODUCT USED FOR UNKNOWN INDICATION
     Dosage: 80 MG, DAILY 40 MG AT BEDTIME
     Route: 048
  33. ASPIRIN [Concomitant]
     Indication: PRODUCT USED FOR UNKNOWN INDICATION
     Dosage: 325 MG, DAILY
     Route: 048
  34. CENTRUM SILVER                     /01292501/ [Concomitant]
     Indication: PRODUCT USED FOR UNKNOWN INDICATION
     Dosage: 1 TABLET, DAILY EVERY MORNING
     Route: 048

REACTIONS (3)
  - Medication residue present [Unknown]
  - Drug effect decreased [Unknown]
  - Drug ineffective [Unknown]
